FAERS Safety Report 6172277-6 (Version None)
Quarter: 2009Q2

REPORT INFORMATION
  Report Type: 
  Country: None (occurrence: None)
  Receive Date: 20090429
  Receipt Date: 20090422
  Transmission Date: 20091009
  Serious: Yes (Hospitalization)
  Sender: FDA-Public Use
  Company Number: GB-ASTRAZENECA-2009GB00931

PATIENT
  Sex: Male

DRUGS (2)
  1. LIDOCAINE HCL IN PLASTIC CONTAINER [Suspect]
     Route: 065
  2. PHENYLEPHRINE HYDROCHLORIDE [Suspect]
     Route: 045

REACTIONS (1)
  - SYNCOPE [None]
